FAERS Safety Report 5905260-3 (Version None)
Quarter: 2008Q4

REPORT INFORMATION
  Report Type: 
  Country: None (occurrence: None)
  Receive Date: 20081001
  Receipt Date: 20080926
  Transmission Date: 20090506
  Serious: Yes (Other)
  Sender: FDA-Public Use
  Company Number: US-BAXTER-2008BH010183

PATIENT
  Age: 73 Year
  Sex: Female
  Weight: 65 kg

DRUGS (7)
  1. HEPARIN SODIUM 5,000 UNITS IN DEXTROSE 5% [Suspect]
     Indication: DEEP VEIN THROMBOSIS
     Route: 041
     Dates: start: 20080923, end: 20080923
  2. HEPARIN SODIUM 5,000 UNITS IN DEXTROSE 5% [Suspect]
     Route: 041
     Dates: start: 20080923, end: 20080923
  3. HEPARIN SODIUM 5,000 UNITS IN DEXTROSE 5% [Suspect]
     Dates: start: 20080924, end: 20080924
  4. HEPARIN [Suspect]
     Indication: DEEP VEIN THROMBOSIS
     Route: 042
     Dates: start: 20080923, end: 20080923
  5. FUROSEMIDE [Concomitant]
     Indication: DRUG USE FOR UNKNOWN INDICATION
     Route: 065
  6. POTASSIUM CHLORIDE [Concomitant]
     Indication: MINERAL SUPPLEMENTATION
     Dosage: DOSE UNIT:UNKNOWN
     Route: 048
  7. ASPIRIN [Concomitant]
     Indication: DRUG USE FOR UNKNOWN INDICATION
     Dosage: DOSE UNIT:UNKNOWN
     Route: 048

REACTIONS (1)
  - ACTIVATED PARTIAL THROMBOPLASTIN TIME PROLONGED [None]
